FAERS Safety Report 21739005 (Version 1)
Quarter: 2022Q4

REPORT INFORMATION
  Report Type: Spontaneous
  Country: CA (occurrence: CA)
  Receive Date: 20221216
  Receipt Date: 20221216
  Transmission Date: 20230113
  Serious: Yes (Death, Other)
  Sender: FDA-Public Use
  Company Number: CA-JNJFOC-20221229334

PATIENT

DRUGS (1)
  1. ACETAMINOPHEN [Suspect]
     Active Substance: ACETAMINOPHEN
     Indication: Product used for unknown indication
     Route: 065

REACTIONS (5)
  - Accidental overdose [Fatal]
  - Acute hepatic failure [Fatal]
  - Drug monitoring procedure incorrectly performed [Fatal]
  - Incorrect product administration duration [Fatal]
  - Product prescribing error [Fatal]
